FAERS Safety Report 5592631-0 (Version None)
Quarter: 2007Q4

REPORT INFORMATION
  Report Type: 
  Country: None (occurrence: None)
  Receive Date: 20071218
  Receipt Date: 20071001
  Transmission Date: 20080405
  Serious: Yes (Hospitalization, Other)
  Sender: FDA-Public Use
  Company Number: 2007081971

PATIENT
  Sex: Female
  Weight: 86.2 kg

DRUGS (1)
  1. BEXTRA [Suspect]
     Indication: ARTHRITIS
     Dosage: (1 D)

REACTIONS (1)
  - CARDIAC FAILURE CONGESTIVE [None]
